FAERS Safety Report 5023327-1 (Version None)
Quarter: 2006Q2

REPORT INFORMATION
  Report Type: 
  Country: None (occurrence: None)
  Receive Date: 20060501
  Receipt Date: 20060110
  Transmission Date: 20061013
  Serious: Yes (Other)
  Sender: FDA-Public Use
  Company Number: US200601000347

PATIENT
  Age: 27 Year
  Sex: Female
  Weight: 61.2 kg

DRUGS (1)
  1. SYMBYAX [Suspect]
     Dosage: D/F
     Dates: start: 20051001

REACTIONS (1)
  - DEEP VEIN THROMBOSIS [None]
